FAERS Safety Report 6557850-5 (Version None)
Quarter: 2010Q1

REPORT INFORMATION
  Report Type: 
  Country: None (occurrence: None)
  Receive Date: 20100129
  Receipt Date: 20091210
  Transmission Date: 20100710
  Serious: No
  Sender: FDA-Public Use
  Company Number: US-BAUSCH-2009BL006483

PATIENT
  Age: 71 Year
  Sex: Female

DRUGS (5)
  1. TOBRAMYCIN AND DEXAMETHASONE OPHTHALMIC SUSPENSION USP 0.3%/0.1% [Suspect]
     Indication: MEIBOMIAN GLAND DYSFUNCTION
     Route: 047
     Dates: start: 20091204, end: 20091207
  2. TOBRAMYCIN AND DEXAMETHASONE OPHTHALMIC SUSPENSION USP 0.3%/0.1% [Suspect]
     Route: 047
     Dates: start: 20091208
  3. AZITHROMYCIN [Concomitant]
     Indication: MEIBOMIAN GLAND DYSFUNCTION
     Route: 047
     Dates: start: 20091129
  4. RESTASIS [Concomitant]
     Indication: DRY EYE
  5. SYSTANE [Concomitant]
     Indication: DRY EYE
     Route: 047

REACTIONS (2)
  - EYE IRRITATION [None]
  - PHOTOPHOBIA [None]
